FAERS Safety Report 21914240 (Version 1)
Quarter: 2023Q1

REPORT INFORMATION
  Report Type: Spontaneous
  Country: US (occurrence: US)
  Receive Date: 20230126
  Receipt Date: 20230126
  Transmission Date: 20230417
  Serious: Yes (Other)
  Sender: FDA-Public Use
  Company Number: US-CELLTRION INC.-2023US001397

PATIENT

DRUGS (1)
  1. TRUXIMA [Suspect]
     Active Substance: RITUXIMAB-ABBS
     Indication: Psoriatic arthropathy
     Dosage: THERAPY WAS PLANNED FOR 1/16/2023 AND 1/20/2023 FOR 1000MG Q WEEK 0 AND 2, REPEAT SERIES Q6M

REACTIONS (2)
  - Psoriatic arthropathy [Unknown]
  - Off label use [Unknown]
